FAERS Safety Report 6687243-1 (Version None)
Quarter: 2010Q2

REPORT INFORMATION
  Report Type: 
  Country: None (occurrence: None)
  Receive Date: 20100415
  Receipt Date: 20100402
  Transmission Date: 20101027
  Serious: Yes (Life-Threatening, Hospitalization)
  Sender: FDA-Public Use
  Company Number: TRP_06893_2010

PATIENT
  Sex: Male

DRUGS (6)
  1. INFERGEN [Suspect]
     Indication: HEPATITIS C
     Dosage: (15 ?G)
     Dates: start: 20091109
  2. RIBAVIRIN [Suspect]
     Indication: HEPATITIS C
     Dosage: (1000 MG,   DAILY ORAL)
     Route: 048
     Dates: start: 20090507
  3. OMEPRAZOLE [Concomitant]
  4. RITALIN [Concomitant]
  5. SERTRALINE HCL [Concomitant]
  6. BUSPAR [Concomitant]

REACTIONS (4)
  - ANAEMIA MACROCYTIC [None]
  - BLOOD LACTATE DEHYDROGENASE INCREASED [None]
  - HAEMOLYSIS [None]
  - RENAL FAILURE ACUTE [None]
